FAERS Safety Report 5189437-3 (Version None)
Quarter: 2006Q4

REPORT INFORMATION
  Report Type: 
  Country: None (occurrence: None)
  Receive Date: 20061215
  Receipt Date: 20061129
  Transmission Date: 20070319
  Serious: Yes (Hospitalization, Other)
  Sender: FDA-Public Use
  Company Number: 2006002258

PATIENT
  Age: 68 Year
  Sex: Male

DRUGS (6)
  1. TARCEVA [Suspect]
     Dates: start: 20061109
  2. GLIPIZIDE [Concomitant]
  3. METFORMIN HCL [Concomitant]
  4. FUROSEMIDE [Concomitant]
  5. SIMVASATIN                     (SIMVASTATIN) [Concomitant]
  6. RAMIPRIL [Concomitant]

REACTIONS (2)
  - HYPOGLYCAEMIA [None]
  - TRANSIENT ISCHAEMIC ATTACK [None]
